FAERS Safety Report 10157338 (Version 1)
Quarter: 2014Q2

REPORT INFORMATION
  Report Type: Report from Study
  Country: MY (occurrence: MY)
  Receive Date: 20140507
  Receipt Date: 20140507
  Transmission Date: 20141212
  Serious: Yes (Hospitalization)
  Sender: FDA-Public Use
  Company Number: MY-SA-2014SA058581

PATIENT
  Age: 48 Year
  Sex: Female
  Weight: 35.5 kg

DRUGS (17)
  1. AFLIBERCEPT [Suspect]
     Indication: COLORECTAL CANCER METASTATIC
     Route: 041
     Dates: start: 20130930, end: 20130930
  2. AFLIBERCEPT [Suspect]
     Indication: COLORECTAL CANCER METASTATIC
     Route: 041
     Dates: start: 20131209, end: 20131209
  3. 5 FU [Suspect]
     Indication: COLORECTAL CANCER METASTATIC
     Route: 040
     Dates: start: 20130930, end: 20130930
  4. 5 FU [Suspect]
     Indication: COLORECTAL CANCER METASTATIC
     Route: 041
     Dates: start: 20130930, end: 20130930
  5. 5 FU [Suspect]
     Indication: COLORECTAL CANCER METASTATIC
     Route: 040
     Dates: start: 20131209, end: 20131209
  6. 5 FU [Suspect]
     Indication: COLORECTAL CANCER METASTATIC
     Route: 041
     Dates: start: 20131209, end: 20131209
  7. IRINOTECAN [Suspect]
     Indication: COLORECTAL CANCER METASTATIC
     Route: 041
     Dates: start: 20130930, end: 20130930
  8. IRINOTECAN [Suspect]
     Indication: COLORECTAL CANCER METASTATIC
     Route: 041
     Dates: start: 20131209, end: 20131209
  9. LEUCOVORIN [Suspect]
     Indication: COLORECTAL CANCER METASTATIC
     Route: 041
     Dates: start: 20130930, end: 20130930
  10. LEUCOVORIN [Suspect]
     Indication: COLORECTAL CANCER METASTATIC
     Route: 041
     Dates: start: 20131209, end: 20131209
  11. DEXAMETHASONE [Concomitant]
     Indication: PROPHYLAXIS
  12. DEXAMETHASONE [Concomitant]
     Indication: PROPHYLAXIS
     Route: 042
  13. NALOXONE [Concomitant]
  14. RANITIDINE [Concomitant]
  15. TRAMAL [Concomitant]
  16. GRANISETRON [Concomitant]
     Route: 042
  17. ATROPINE [Concomitant]

REACTIONS (1)
  - Perinephric collection [Recovered/Resolved]
